FAERS Safety Report 19084526 (Version 1)
Quarter: 2021Q2

REPORT INFORMATION
  Report Type: Spontaneous
  Country: US (occurrence: US)
  Receive Date: 20210401
  Receipt Date: 20210401
  Transmission Date: 20210717
  Serious: No
  Sender: FDA-Public Use
  Company Number: US-IBSA PHARMA-2020-IBS-00748

PATIENT
  Age: 59 Year
  Weight: 108 kg

DRUGS (2)
  1. FLECTOR [Suspect]
     Active Substance: DICLOFENAC EPOLAMINE
     Indication: BACK PAIN
  2. FLECTOR [Suspect]
     Active Substance: DICLOFENAC EPOLAMINE
     Indication: ARTHRALGIA
     Dosage: 1 DOSAGE FORM, 2X/DAY [1 PATCH TO SKIN Q (EVERY) 12 H]
     Route: 061
     Dates: start: 2014

REACTIONS (2)
  - Oral pain [Unknown]
  - Product dispensing error [Unknown]
